FAERS Safety Report 7134951-4 (Version None)
Quarter: 2010Q4

REPORT INFORMATION
  Report Type: 
  Country: None (occurrence: None)
  Receive Date: 20101203
  Receipt Date: 20101123
  Transmission Date: 20110411
  Serious: Yes (Other)
  Sender: FDA-Public Use
  Company Number: US-AMGEN-USASP2010006368

PATIENT

DRUGS (3)
  1. ENBREL [Suspect]
     Indication: PSORIASIS
     Dates: start: 20050701
  2. ENBREL [Suspect]
     Indication: PSORIATIC ARTHROPATHY
  3. HUMIRA [Concomitant]

REACTIONS (8)
  - ARTHROPATHY [None]
  - FACIAL NERVE DISORDER [None]
  - NERVE INJURY [None]
  - NEUROPATHY PERIPHERAL [None]
  - PARAESTHESIA [None]
  - PSORIATIC ARTHROPATHY [None]
  - TEMPOROMANDIBULAR JOINT SYNDROME [None]
  - URTICARIA [None]
